FAERS Safety Report 25980940 (Version 2)
Quarter: 2025Q4

REPORT INFORMATION
  Report Type: Report from Study
  Country: US (occurrence: US)
  Receive Date: 20251030
  Receipt Date: 20251031
  Transmission Date: 20260118
  Serious: Yes (Other)
  Sender: ABBVIE
  Company Number: US-ABBVIE-6399087

PATIENT
  Age: 46 Year
  Sex: Female

DRUGS (2)
  1. SKYRIZI [Suspect]
     Active Substance: RISANKIZUMAB-RZAA
     Indication: Pouchitis
     Route: 042
     Dates: start: 20250731, end: 20250731
  2. SKYRIZI [Suspect]
     Active Substance: RISANKIZUMAB-RZAA
     Indication: Pouchitis
     Route: 042
     Dates: start: 20250826

REACTIONS (4)
  - Anastomotic ulcer [Unknown]
  - Off label use [Unknown]
  - Product dispensing error [Unknown]
  - Enteritis [Unknown]

NARRATIVE: CASE EVENT DATE: 20250101
